FAERS Safety Report 21434183 (Version 1)
Quarter: 2022Q4

REPORT INFORMATION
  Report Type: Spontaneous
  Country: DE (occurrence: DE)
  Receive Date: 20221010
  Receipt Date: 20221010
  Transmission Date: 20230112
  Serious: Yes (Other)
  Sender: FDA-Public Use
  Company Number: None

PATIENT
  Age: 70 Year
  Sex: Female
  Weight: 51 kg

DRUGS (6)
  1. HARVONI [Suspect]
     Active Substance: LEDIPASVIR\SOFOSBUVIR
     Indication: Chronic hepatitis C
     Dosage: 1 DOSAGE FORM, QD
     Route: 048
     Dates: start: 20150317, end: 20150609
  2. FORMOTEROL [Concomitant]
     Active Substance: FORMOTEROL
  3. IPRATROPIUM BROMIDE [Concomitant]
     Active Substance: IPRATROPIUM BROMIDE
  4. IBUPROFEN [Concomitant]
     Active Substance: IBUPROFEN
  5. HEPARIN SODIUM [Concomitant]
     Active Substance: HEPARIN SODIUM
  6. BECLOMETHASONE [Concomitant]
     Active Substance: BECLOMETHASONE

REACTIONS (1)
  - Deep vein thrombosis [Unknown]
